FAERS Safety Report 17166268 (Version 1)
Quarter: 2019Q4

REPORT INFORMATION
  Report Type: Spontaneous
  Country: CN (occurrence: CN)
  Receive Date: 20191217
  Receipt Date: 20191217
  Transmission Date: 20200122
  Serious: Yes (Hospitalization)
  Sender: FDA-Public Use
  Company Number: CN-GLAXOSMITHKLINE-CN2019APC225016

PATIENT

DRUGS (1)
  1. CEFUROXIME AXETIL. [Suspect]
     Active Substance: CEFUROXIME AXETIL
     Indication: DERMAL CYST
     Dosage: 1 DF
     Route: 048
     Dates: start: 20181207

REACTIONS (6)
  - Alcohol interaction [Unknown]
  - Alcohol intolerance [Unknown]
  - Drug hypersensitivity [Unknown]
  - Pruritus [Unknown]
  - Oral pruritus [Unknown]
  - Throat irritation [Unknown]

NARRATIVE: CASE EVENT DATE: 20181207
